FAERS Safety Report 14798830 (Version 12)
Quarter: 2021Q4

REPORT INFORMATION
  Report Type: Report from Study
  Country: BR (occurrence: None)
  Receive Date: 20180424
  Receipt Date: 20211115
  Transmission Date: 20220303
  Serious: Yes (Death, Hospitalization)
  Sender: FDA-Public Use
  Company Number: BR-ROCHE-1980416

PATIENT
  Age: 74 Year
  Sex: Male
  Weight: 90.5 kg

DRUGS (22)
  1. ATEZOLIZUMAB [Suspect]
     Active Substance: ATEZOLIZUMAB
     Indication: Malignant urinary tract neoplasm
     Dosage: THERAPY START DATE: 10/AUG/2017?MOST RECENT DOSE OF STUDY DRUG PRIOR TO AE ONSET: 04/SEP/2017 (1200
     Route: 042
     Dates: start: 20170810, end: 20171116
  2. DIPYRONE [Concomitant]
     Active Substance: DIPYRONE
     Dosage: DROPS ?500 MG/ML
     Route: 048
     Dates: start: 201701, end: 20170921
  3. DIPYRONE [Concomitant]
     Active Substance: DIPYRONE
     Dosage: DROPS ?500 MG/ML
     Route: 048
     Dates: start: 20170922
  4. DIPYRONE [Concomitant]
     Active Substance: DIPYRONE
     Route: 042
     Dates: start: 20170919, end: 20170919
  5. DIPYRONE [Concomitant]
     Active Substance: DIPYRONE
     Route: 042
     Dates: start: 20171122, end: 20171122
  6. SODIUM BICARBONATE [Concomitant]
     Active Substance: SODIUM BICARBONATE
     Route: 048
     Dates: start: 20170922
  7. AMLODIPINE BESYLATE [Concomitant]
     Active Substance: AMLODIPINE BESYLATE
     Route: 048
     Dates: start: 2016, end: 20171006
  8. FOLIC ACID [Concomitant]
     Active Substance: FOLIC ACID
     Indication: Anaemia
     Route: 048
     Dates: start: 20170926
  9. LOSARTAN [Concomitant]
     Active Substance: LOSARTAN
     Route: 048
     Dates: start: 20171007, end: 20171110
  10. GABAPENTIN [Concomitant]
     Active Substance: GABAPENTIN
     Route: 048
     Dates: start: 20171010, end: 20171017
  11. CAPTOPRIL [Concomitant]
     Active Substance: CAPTOPRIL
     Indication: Hypertension
     Route: 048
     Dates: start: 20171023, end: 20171023
  12. PROPRANOLOL HYDROCHLORIDE [Concomitant]
     Active Substance: PROPRANOLOL HYDROCHLORIDE
     Indication: Hypertension
     Route: 048
     Dates: start: 20171122, end: 20171122
  13. PROPRANOLOL HYDROCHLORIDE [Concomitant]
     Active Substance: PROPRANOLOL HYDROCHLORIDE
     Route: 048
     Dates: start: 20171111
  14. HYDRALAZINE [Concomitant]
     Active Substance: HYDRALAZINE HYDROCHLORIDE
     Indication: Hypertension
     Route: 048
     Dates: start: 20171111
  15. HYDRALAZINE [Concomitant]
     Active Substance: HYDRALAZINE HYDROCHLORIDE
     Route: 048
     Dates: start: 20171121, end: 20171121
  16. OMEPRAZOLE [Concomitant]
     Active Substance: OMEPRAZOLE
     Indication: Peptic ulcer
     Route: 042
     Dates: start: 20170919, end: 20170922
  17. HEPARIN [Concomitant]
     Active Substance: HEPARIN SODIUM
     Indication: Embolism
     Dosage: DAILY DOSE 15,000 UI
     Route: 058
     Dates: start: 20170919, end: 20170921
  18. HEPARIN [Concomitant]
     Active Substance: HEPARIN SODIUM
     Dosage: DAILY DOSE 1000 UI
     Route: 058
     Dates: start: 20171121, end: 20171122
  19. AMLODIPINE [Concomitant]
     Active Substance: AMLODIPINE BESYLATE
     Route: 048
     Dates: start: 20170919, end: 20170921
  20. LEVOTHYROXINE [Concomitant]
     Active Substance: LEVOTHYROXINE
     Indication: Hypothyroidism
     Route: 048
     Dates: start: 20171121, end: 20171122
  21. METFORMIN [Concomitant]
     Active Substance: METFORMIN HYDROCHLORIDE
     Dates: start: 2002
  22. CLONAZEPAM [Concomitant]
     Active Substance: CLONAZEPAM
     Indication: Hypertension
     Route: 048
     Dates: start: 20171023, end: 20171023

REACTIONS (2)
  - Chronic kidney disease [Recovered/Resolved]
  - Chronic kidney disease [Fatal]

NARRATIVE: CASE EVENT DATE: 20170918
